FAERS Safety Report 6334792-1 (Version None)
Quarter: 2009Q3

REPORT INFORMATION
  Report Type: 
  Country: None (occurrence: None)
  Receive Date: 20090831
  Receipt Date: 20090817
  Transmission Date: 20100115
  Serious: Yes (Death)
  Sender: FDA-Public Use
  Company Number: JP-BAYER-200912953BYL

PATIENT
  Age: 51 Year
  Sex: Female

DRUGS (10)
  1. CIPROXAN-I.V. [Suspect]
     Indication: PNEUMONIA
     Dosage: TOTAL DAILY DOSE: 300 MG  UNIT DOSE: 300 MG
     Route: 041
     Dates: start: 20090126, end: 20090126
  2. BAKTAR [Concomitant]
     Indication: PNEUMONIA
     Dosage: TOTAL DAILY DOSE: 4 DF
     Route: 048
     Dates: start: 20090126, end: 20090127
  3. TAKEPRON [Concomitant]
     Dosage: TOTAL DAILY DOSE: 15 MG  UNIT DOSE: 15 MG
     Route: 048
     Dates: start: 20090124, end: 20090127
  4. PREDONINE [Concomitant]
     Dosage: TOTAL DAILY DOSE: 7.5 MG
     Route: 048
     Dates: start: 20090124, end: 20090127
  5. DIPRIVAN [Concomitant]
     Dosage: TOTAL DAILY DOSE: 500 MG  UNIT DOSE: 1 %
     Route: 042
     Dates: start: 20090126, end: 20090126
  6. ALBUMINAR [Concomitant]
     Dosage: TOTAL DAILY DOSE: 500 ML  UNIT DOSE: 5 %
     Route: 042
     Dates: start: 20090126, end: 20090127
  7. EPOGIN INJ. 1500,3000 [Concomitant]
     Route: 042
     Dates: start: 20090126, end: 20090126
  8. KAKODIN-D [Concomitant]
     Dosage: TOTAL DAILY DOSE: 400 ML
     Route: 042
     Dates: start: 20090126, end: 20090126
  9. SUBLOOD-BS [Concomitant]
     Indication: DIALYSIS
     Dosage: TOTAL DAILY DOSE: 4040 ML
     Route: 065
     Dates: start: 20090126, end: 20090126
  10. DIGOSIN [Concomitant]
     Dosage: TOTAL DAILY DOSE: 0.25 MG
     Route: 042
     Dates: start: 20090126, end: 20090126

REACTIONS (1)
  - CARDIAC FAILURE [None]
